FAERS Safety Report 7423101-2 (Version None)
Quarter: 2011Q2

REPORT INFORMATION
  Report Type: 
  Country: None (occurrence: None)
  Receive Date: 20110419
  Receipt Date: 20110411
  Transmission Date: 20111010
  Serious: Yes (Hospitalization, Other)
  Sender: FDA-Public Use
  Company Number: FR-AMGEN-FRASP2011009317

PATIENT
  Age: 65 Year
  Sex: Female

DRUGS (9)
  1. APROVEL [Concomitant]
  2. RANITIDINE [Concomitant]
  3. LEVOTHYROX [Concomitant]
  4. NEORECORMON [Concomitant]
  5. EPREX [Concomitant]
  6. NEUPOGEN [Suspect]
     Indication: CHEMOTHERAPY
     Dosage: UNK
     Dates: start: 20070101
  7. FLUOROURACIL [Concomitant]
  8. FOLIC ACID [Concomitant]
  9. CISPLATIN [Concomitant]

REACTIONS (11)
  - NEUTROPENIA [None]
  - ACUTE LEUKAEMIA [None]
  - PSEUDOMONAS INFECTION [None]
  - ENCEPHALOPATHY [None]
  - URINARY TRACT INFECTION [None]
  - COMA [None]
  - HEPARIN-INDUCED THROMBOCYTOPENIA [None]
  - QUADRIPLEGIA [None]
  - THROMBOCYTOPENIA [None]
  - PYREXIA [None]
  - RENAL IMPAIRMENT [None]
